FAERS Safety Report 12707128 (Version 1)
Quarter: 2016Q3

REPORT INFORMATION
  Report Type: Spontaneous
  Country: KR (occurrence: KR)
  Receive Date: 20160901
  Receipt Date: 20160901
  Transmission Date: 20161109
  Serious: Yes (Other)
  Sender: FDA-Public Use
  Company Number: KR-AMGEN-KORSP2016114082

PATIENT
  Age: 78 Year
  Sex: Female

DRUGS (3)
  1. G-LASTA [Suspect]
     Active Substance: PEGFILGRASTIM
     Indication: PRODUCT USED FOR UNKNOWN INDICATION
     Dosage: 6 MG, UNK
     Route: 065
     Dates: start: 20150607, end: 20150607
  2. G-LASTA [Suspect]
     Active Substance: PEGFILGRASTIM
     Dosage: 6 MG, UNK
     Route: 065
     Dates: start: 20150708, end: 20150708
  3. G-LASTA [Suspect]
     Active Substance: PEGFILGRASTIM
     Dosage: 6 MG, UNK
     Route: 065
     Dates: start: 20150805, end: 20150805

REACTIONS (7)
  - Neutropenia [Unknown]
  - Pruritus [Unknown]
  - Asthenia [Unknown]
  - Neutropenia [Unknown]
  - Pyrexia [Unknown]
  - Neutropenia [Unknown]
  - Delirium [Unknown]

NARRATIVE: CASE EVENT DATE: 20150607
